FAERS Safety Report 8119078-7 (Version None)
Quarter: 2012Q1

REPORT INFORMATION
  Report Type: 
  Country: None (occurrence: None)
  Receive Date: 20120207
  Receipt Date: 20120202
  Transmission Date: 20120608
  Serious: Yes (Other)
  Sender: FDA-Public Use
  Company Number: US-PFIZER INC-2012029488

PATIENT
  Sex: Female
  Weight: 56.689 kg

DRUGS (3)
  1. ENALAPRIL [Concomitant]
     Indication: HYPERTENSION
     Dosage: UNK
  2. LYRICA [Suspect]
     Indication: HERPES ZOSTER
     Dosage: 100 MG, 2X/DAY
     Route: 048
     Dates: start: 20111001
  3. NIFEDIPINE [Concomitant]
     Indication: HYPERTENSION
     Dosage: UNK

REACTIONS (3)
  - LIMB DISCOMFORT [None]
  - ARTHRALGIA [None]
  - DYSPHONIA [None]
